FAERS Safety Report 9630309 (Version 2)
Quarter: 2013Q4

REPORT INFORMATION
  Report Type: Spontaneous
  Country: US (occurrence: US)
  Receive Date: 20131018
  Receipt Date: 20131106
  Transmission Date: 20140711
  Serious: Yes (Other)
  Sender: FDA-Public Use
  Company Number: US-009507513-1310USA005733

PATIENT
  Age: 34 Year
  Sex: Female

DRUGS (1)
  1. INVANZ [Suspect]
     Indication: SOFT TISSUE INFECTION

REACTIONS (2)
  - Systemic lupus erythematosus [Recovered/Resolved]
  - Liver function test abnormal [Recovered/Resolved]
